FAERS Safety Report 13597355 (Version 1)
Quarter: 2017Q2

REPORT INFORMATION
  Report Type: Spontaneous
  Country: US (occurrence: US)
  Receive Date: 20170531
  Receipt Date: 20170531
  Transmission Date: 20170830
  Serious: No
  Sender: FDA-Public Use
  Company Number: US-GLAXOSMITHKLINE-US2017077327

PATIENT
  Age: 85 Year
  Sex: Female

DRUGS (1)
  1. NICODERM CQ [Suspect]
     Active Substance: NICOTINE
     Indication: SMOKING CESSATION THERAPY
     Dosage: 14 MG, UNK
     Route: 062
     Dates: start: 20170511, end: 20170512

REACTIONS (8)
  - Application site pain [Recovered/Resolved]
  - Application site irritation [Recovering/Resolving]
  - Drug hypersensitivity [Recovered/Resolved]
  - Application site discharge [Recovering/Resolving]
  - Application site vesicles [Recovering/Resolving]
  - Hypersensitivity [Recovering/Resolving]
  - Application site erythema [Recovering/Resolving]
  - Application site reaction [Not Recovered/Not Resolved]

NARRATIVE: CASE EVENT DATE: 20170511
